FAERS Safety Report 10520342 (Version 2)
Quarter: 2014Q4

REPORT INFORMATION
  Report Type: Report from Study
  Country: US (occurrence: US)
  Receive Date: 20141015
  Receipt Date: 20141106
  Transmission Date: 20150528
  Serious: Yes (Hospitalization)
  Sender: FDA-Public Use
  Company Number: US-GLAXOSMITHKLINE-US2014GSK000898

PATIENT
  Age: 25 Year
  Sex: Male
  Weight: 70.7 kg

DRUGS (9)
  1. AMLODIPINE [Concomitant]
     Active Substance: AMLODIPINE BESYLATE
  2. VALACYCLOVIR TABLET [Concomitant]
  3. ATOVAQUONE ORAL SUSPENSION [Concomitant]
  4. ANTITHYMOCYTE IMMUNOGLOBULIN [Suspect]
     Active Substance: THYMOCYTE IMMUNE GLOBULIN NOS
     Indication: APLASTIC ANAEMIA
     Dosage: UNK
     Route: 042
     Dates: start: 20140822
  5. INFLUENZA VACCINE SOLUTION FOR INJECTION [Concomitant]
  6. ELTROMBOPAG TABLET [Suspect]
     Active Substance: ELTROMBOPAG
     Indication: APLASTIC ANAEMIA
     Dosage: 150 MG, QD
     Route: 048
     Dates: start: 20140904, end: 20141005
  7. CYCLOSPORIN CONCENTRATE FOR SOLUTION FOR INFUSION [Suspect]
     Active Substance: CYCLOSPORINE
     Indication: APLASTIC ANAEMIA
     Dosage: UNK
     Route: 042
     Dates: start: 20140822
  8. NYSTATIN. [Concomitant]
     Active Substance: NYSTATIN
  9. LEVAQUIN [Concomitant]
     Active Substance: LEVOFLOXACIN

REACTIONS (2)
  - Rash [Recovering/Resolving]
  - Febrile neutropenia [Recovering/Resolving]

NARRATIVE: CASE EVENT DATE: 20141001
